FAERS Safety Report 8338216-4 (Version None)
Quarter: 2012Q2

REPORT INFORMATION
  Report Type: 
  Country: None (occurrence: None)
  Receive Date: 20120504
  Receipt Date: 20120425
  Transmission Date: 20120825
  Serious: Yes (Other)
  Sender: FDA-Public Use
  Company Number: US-ASTRAZENECA-2012SE27277

PATIENT
  Age: 63 Year
  Sex: Female

DRUGS (5)
  1. PREDNISONE TAB [Concomitant]
  2. NEXIUM [Suspect]
     Dosage: EVERY DAY
     Route: 048
  3. RHINOCORT [Suspect]
     Route: 045
  4. NEXIUM [Suspect]
     Dosage: EVERY OTHER DAY
     Route: 048
  5. TOPROL-XL [Suspect]
     Route: 048

REACTIONS (2)
  - CEREBROVASCULAR ACCIDENT [None]
  - ARTERITIS [None]
